FAERS Safety Report 14205381 (Version 1)
Quarter: 2017Q4

REPORT INFORMATION
  Report Type: Spontaneous
  Country: FR (occurrence: FR)
  Receive Date: 20171120
  Receipt Date: 20171120
  Transmission Date: 20180321
  Serious: Yes (Hospitalization)
  Sender: FDA-Public Use
  Company Number: FR-009507513-1711FRA007086

PATIENT
  Age: 60 Year
  Sex: Male

DRUGS (2)
  1. ONCOTICE [Suspect]
     Active Substance: BACILLUS CALMETTE-GUERIN SUBSTRAIN TICE LIVE ANTIGEN
     Indication: TRANSITIONAL CELL CARCINOMA
     Dosage: POWDER FOR INTRAVESICAL SOLUTION
     Route: 043
     Dates: start: 201506, end: 201510
  2. AMETYCINE [Suspect]
     Active Substance: MITOMYCIN
     Indication: TRANSITIONAL CELL CARCINOMA
     Dosage: UNK
     Route: 043
     Dates: start: 20130802, end: 20131025

REACTIONS (1)
  - Bladder necrosis [Not Recovered/Not Resolved]

NARRATIVE: CASE EVENT DATE: 201709
